FAERS Safety Report 8102684-3 (Version None)
Quarter: 2012Q1

REPORT INFORMATION
  Report Type: 
  Country: None (occurrence: None)
  Receive Date: 20120201
  Receipt Date: 20120120
  Transmission Date: 20120608
  Serious: Yes (Hospitalization)
  Sender: FDA-Public Use
  Company Number: FR-UCBSA-049711

PATIENT
  Age: 47 Year
  Sex: Female

DRUGS (7)
  1. NEXIUM [Suspect]
     Dosage: DAILY DOSE: 40MG
     Route: 048
     Dates: start: 20110715
  2. PACLITAXEL [Suspect]
     Indication: LUNG ADENOCARCINOMA STAGE IV
     Dosage: DAILY DOSE : 200 MG/M2
     Route: 042
     Dates: start: 20110712, end: 20110712
  3. CARBOPLATIN [Suspect]
     Indication: LUNG ADENOCARCINOMA STAGE IV
     Dosage: DAILY DOSE : 4.6 MG/M2
     Route: 042
     Dates: start: 20110712
  4. FLUCONAZOLE [Suspect]
     Indication: CANDIDIASIS
     Dosage: DAILY DOSE: 100 MG
     Route: 042
     Dates: start: 20110725, end: 20110729
  5. PIPERACILLIN/TAZOBACTAM [Suspect]
     Indication: LUNG INFECTION
     Dosage: DAILY DOSE: 3 UNITS, POWDER FOR DRIP SOLUTION
     Route: 042
     Dates: start: 20110703
  6. KEPPRA [Suspect]
     Indication: EPILEPSY
     Dosage: 500 MG, DAILY DOSE: 1250 MG
     Route: 048
     Dates: start: 20110401
  7. LYRICA [Suspect]
     Indication: EPILEPSY
     Dosage: 25 MG, DAILY DOSE: 50 MG
     Route: 048
     Dates: start: 20110604

REACTIONS (3)
  - THROMBOCYTOPENIA [None]
  - AGRANULOCYTOSIS [None]
  - NEUTROPENIA [None]
